FAERS Safety Report 9573687 (Version 1)
Quarter: 2013Q4

REPORT INFORMATION
  Report Type: Spontaneous
  Country: IT (occurrence: IT)
  Receive Date: 20131001
  Receipt Date: 20131001
  Transmission Date: 20140711
  Serious: Yes (Other)
  Sender: FDA-Public Use
  Company Number: IT-TEVA-434295ISR

PATIENT
  Age: 57 Year
  Sex: Male
  Weight: 57 kg

DRUGS (5)
  1. FLUOROURCILE TEVA [Suspect]
     Indication: GASTRIC CANCER
     Dosage: 4,86 MG CYCLICAL
     Route: 042
  2. CISPLATINO HOSPIRA [Suspect]
     Indication: GASTRIC CANCER
     Dosage: 162 MG CYCLICAL
     Route: 042
     Dates: start: 20130129, end: 20130430
  3. RANIDIL [Concomitant]
     Dosage: 50 MILLIGRAM DAILY;
     Route: 042
  4. SOLDESAM [Concomitant]
     Dosage: 8 MILLIGRAM DAILY;
     Route: 042
  5. ONDANSETRONE HIKMA [Concomitant]
     Dosage: 8 MILLIGRAM DAILY;
     Route: 042

REACTIONS (4)
  - Formication [Unknown]
  - Skin exfoliation [Unknown]
  - Constipation [Unknown]
  - Mucosal inflammation [Unknown]
